FAERS Safety Report 10457537 (Version 1)
Quarter: 2014Q3

REPORT INFORMATION
  Report Type: Spontaneous
  Country: CA (occurrence: CA)
  Receive Date: 20140916
  Receipt Date: 20140916
  Transmission Date: 20150326
  Serious: Yes (Death)
  Sender: FDA-Public Use
  Company Number: CHPA2014CA012087

PATIENT
  Sex: Male

DRUGS (1)
  1. BENEFIBER [Suspect]
     Active Substance: STARCH, WHEAT

REACTIONS (1)
  - Death [Fatal]
